FAERS Safety Report 6795507-6 (Version None)
Quarter: 2010Q2

REPORT INFORMATION
  Report Type: 
  Country: None (occurrence: None)
  Receive Date: 20100625
  Receipt Date: 20100622
  Transmission Date: 20101027
  Serious: Yes (Hospitalization)
  Sender: FDA-Public Use
  Company Number: JP-GENZYME-FABR-1001324

PATIENT
  Sex: Female
  Weight: 40 kg

DRUGS (11)
  1. FABRAZYME [Suspect]
     Indication: FABRY'S DISEASE
     Dosage: 1 MG/KG, Q2W
     Route: 042
     Dates: start: 20100408
  2. FABRAZYME [Suspect]
     Dosage: 0.437 MG/KG, Q4W
     Route: 042
     Dates: start: 20091112
  3. FABRAZYME [Suspect]
     Dosage: 1 MG/KG, Q2W
     Route: 042
     Dates: start: 20050125, end: 20091022
  4. LOSARTAN POTASSIUM [Concomitant]
     Indication: RENAL FAILURE
     Dosage: 50 MG, UNK
     Dates: start: 20040831
  5. DIPYRIDAMOLE [Concomitant]
     Indication: RENAL FAILURE
     Dosage: 150 MG, UNK
     Dates: start: 20040831
  6. ENALAPRIL MALEATE [Concomitant]
     Indication: HYPERTENSION
     Dosage: 5 MG, UNK
     Dates: start: 20100323
  7. RABEPRAZOLE SODIUM [Concomitant]
     Indication: GASTRIC ULCER
     Dosage: 10 MG, UNK
     Dates: start: 20100323
  8. FUROSEMIDE [Concomitant]
     Indication: RENAL FAILURE
     Dosage: 20 MG, UNK
     Dates: start: 20100323
  9. ALFACALCIDOL [Concomitant]
     Indication: RENAL FAILURE
     Dosage: 0.25 MG, UNK
     Dates: start: 20100323
  10. CARVEDILOL [Concomitant]
     Indication: ATRIAL FLUTTER
     Dosage: 1.25 MG, UNK
     Dates: start: 20100323
  11. WARFARIN POTASSIUM [Concomitant]
     Indication: ATRIAL FLUTTER
     Dosage: 1.0 MG, UNK
     Dates: start: 20100323

REACTIONS (1)
  - PLEURAL EFFUSION [None]
